FAERS Safety Report 17178956 (Version 1)
Quarter: 2019Q4

REPORT INFORMATION
  Report Type: Spontaneous
  Country: US (occurrence: US)
  Receive Date: 20191219
  Receipt Date: 20191219
  Transmission Date: 20200122
  Serious: Yes (Death, Hospitalization, Other)
  Sender: FDA-Public Use
  Company Number: US-MICRO LABS LIMITED-ML2019-03686

PATIENT
  Age: 13 Year
  Sex: Female

DRUGS (1)
  1. DIPHENHYDRAMINE HYDROCHLORIDE. [Suspect]
     Active Substance: DIPHENHYDRAMINE HYDROCHLORIDE

REACTIONS (7)
  - Depressed level of consciousness [Fatal]
  - Respiratory depression [Fatal]
  - Electrocardiogram QRS complex prolonged [Fatal]
  - Seizure [Fatal]
  - Hypotension [Fatal]
  - Toxicity to various agents [Fatal]
  - Tachycardia [Fatal]
